FAERS Safety Report 4633567-9 (Version None)
Quarter: 2005Q2

REPORT INFORMATION
  Report Type: 
  Country: None (occurrence: None)
  Receive Date: 20050411
  Receipt Date: 20050411
  Transmission Date: 20051028
  Serious: Yes (Other)
  Sender: FDA-Public Use
  Company Number: None

PATIENT
  Age: 25 Year
  Sex: Female
  Weight: 47.6277 kg

DRUGS (1)
  1. PAROXETINE   20MGS     GLAXOSMITH [Suspect]
     Indication: PANIC DISORDER
     Dosage: 20MGS   1 TIME A DAY   ORAL
     Route: 048

REACTIONS (2)
  - CARDIAC MURMUR [None]
  - DRUG WITHDRAWAL SYNDROME [None]
